FAERS Safety Report 5925506-5 (Version None)
Quarter: 2008Q4

REPORT INFORMATION
  Report Type: 
  Country: None (occurrence: None)
  Receive Date: 20081021
  Receipt Date: 20081014
  Transmission Date: 20090506
  Serious: Yes (Other)
  Sender: FDA-Public Use
  Company Number: PHHY2008IE24707

PATIENT
  Age: 82 Year
  Sex: Male

DRUGS (3)
  1. RASILEZ [Suspect]
     Indication: HYPERTENSION
     Dosage: 150 MG, BID
     Route: 048
     Dates: start: 20080814, end: 20080908
  2. WARFARIN SODIUM [Concomitant]
  3. PROSCAR [Concomitant]

REACTIONS (2)
  - DIARRHOEA [None]
  - MUSCLE SPASMS [None]
